FAERS Safety Report 5874884-4 (Version None)
Quarter: 2008Q3

REPORT INFORMATION
  Report Type: 
  Country: None (occurrence: None)
  Receive Date: 20080904
  Receipt Date: 20080822
  Transmission Date: 20090109
  Serious: Yes (Other)
  Sender: FDA-Public Use
  Company Number: 2008SP017159

PATIENT
  Age: 40 Year
  Sex: Male

DRUGS (2)
  1. AERIUS (DESLORATADINE) (DESLORATADINE) (5 MG) [Suspect]
     Indication: DRUG USE FOR UNKNOWN INDICATION
     Dosage: ;UNK;PO
     Route: 048
     Dates: start: 20080809, end: 20080813
  2. SUDAFED 12 HOUR [Concomitant]

REACTIONS (3)
  - HYPOAESTHESIA [None]
  - PSYCHOMOTOR HYPERACTIVITY [None]
  - SPEECH DISORDER [None]
